FAERS Safety Report 9503094 (Version 1)
Quarter: 2013Q3

REPORT INFORMATION
  Report Type: Spontaneous
  Country: BR (occurrence: BR)
  Receive Date: 20130906
  Receipt Date: 20130906
  Transmission Date: 20140515
  Serious: Yes (Hospitalization)
  Sender: FDA-Public Use
  Company Number: BR-SANOFI-AVENTIS-2013SA087546

PATIENT
  Age: 89 Year
  Sex: Male
  Weight: 71 kg

DRUGS (7)
  1. LANTUS [Suspect]
     Indication: TYPE 2 DIABETES MELLITUS
     Dosage: STRENGTH : 3 ML?DOSE: 20-24 IU ON BREAKFAST AND 10-12 IU ON DINNER.
     Route: 058
     Dates: start: 2011
  2. LANTUS [Suspect]
     Indication: TYPE 2 DIABETES MELLITUS
     Dosage: DOSE:10-12 IU
     Route: 058
     Dates: start: 2011
  3. CLIKSTAR [Concomitant]
     Indication: DEVICE THERAPY
     Dates: start: 2011
  4. DIGOXIN [Concomitant]
     Indication: PERIPHERAL VASCULAR DISORDER
  5. WARFARIN [Concomitant]
     Indication: COAGULOPATHY
  6. NORIPURUM [Concomitant]
  7. LASIX [Concomitant]
     Indication: POLYURIA
     Dosage: STRENGTH: 40 MG

REACTIONS (9)
  - Cardiac disorder [Recovering/Resolving]
  - Condition aggravated [Recovering/Resolving]
  - Hyperhidrosis [Recovering/Resolving]
  - Fluid retention [Recovering/Resolving]
  - Hyperglycaemia [Recovered/Resolved]
  - Somnolence [Recovered/Resolved]
  - Hypoglycaemia [Recovered/Resolved]
  - Dyspnoea [Recovered/Resolved]
  - Off label use [Unknown]
